FAERS Safety Report 9365727 (Version 1)
Quarter: 2013Q2

REPORT INFORMATION
  Report Type: Spontaneous
  Country: US (occurrence: US)
  Receive Date: 20130625
  Receipt Date: 20130625
  Transmission Date: 20140414
  Serious: Yes (Other)
  Sender: FDA-Public Use
  Company Number: US-ACCORD-018148

PATIENT
  Age: 63 Year
  Sex: Male

DRUGS (10)
  1. CLOPIDOGREL [Suspect]
     Indication: PRODUCT USED FOR UNKNOWN INDICATION
     Dosage: FOR 2 YEARS WITHOUT COMPLICATION
  2. VITAMIN E [Suspect]
     Indication: PRODUCT USED FOR UNKNOWN INDICATION
  3. NIACIN [Concomitant]
  4. ASPIRIN [Suspect]
     Indication: PRODUCT USED FOR UNKNOWN INDICATION
     Dosage: FOR 2 YEARS WITHOUT COMPLICATION
  5. METOPROLOL [Concomitant]
  6. VALSARTAN [Concomitant]
  7. GEMFIBROZIL [Concomitant]
  8. RANITIDINE [Concomitant]
  9. CLONAZEPAM [Concomitant]
  10. ROSUVASTATIN [Concomitant]

REACTIONS (1)
  - Periorbital haemorrhage [Recovered/Resolved]
